FAERS Safety Report 6864682-7 (Version None)
Quarter: 2010Q3

REPORT INFORMATION
  Report Type: 
  Country: None (occurrence: None)
  Receive Date: 20100721
  Receipt Date: 20080326
  Transmission Date: 20110219
  Serious: No
  Sender: FDA-Public Use
  Company Number: US-PFIZER INC-2008029583

PATIENT
  Sex: Female
  Weight: 64.09 kg

DRUGS (2)
  1. CHANTIX [Suspect]
     Indication: SMOKING CESSATION THERAPY
     Dates: start: 20071001, end: 20071101
  2. ADVAIR DISKUS 100/50 [Concomitant]
     Indication: EMPHYSEMA

REACTIONS (3)
  - AGITATION [None]
  - ANXIETY [None]
  - NAUSEA [None]
